FAERS Safety Report 17549908 (Version 3)
Quarter: 2020Q2

REPORT INFORMATION
  Report Type: Spontaneous
  Country: US (occurrence: US)
  Receive Date: 20200317
  Receipt Date: 20200410
  Transmission Date: 20200713
  Serious: Yes (Death, Hospitalization, Other)
  Sender: FDA-Public Use
  Company Number: US-PFIZER INC-2020114732

PATIENT
  Age: 84 Year
  Sex: Female
  Weight: 55.34 kg

DRUGS (14)
  1. MAG HYDROX [Concomitant]
     Indication: FAECES HARD
     Dosage: 30 ML, 1X/DAY
     Route: 048
     Dates: start: 20200125, end: 20200313
  2. PROCHLORPERAZINE MALEATE. [Concomitant]
     Active Substance: PROCHLORPERAZINE MALEATE
     Indication: NAUSEA
     Dosage: 10 MG, AS NEEDED
     Route: 048
     Dates: start: 20200125, end: 20200313
  3. ONDANSETRON [Concomitant]
     Active Substance: ONDANSETRON
     Indication: NAUSEA
     Dosage: 8 MG, AS NEEDED (8 MG TWICE DAILY AS NEEDED)
     Route: 048
     Dates: start: 20200125, end: 20200313
  4. PANTOPRAZOLE [Concomitant]
     Active Substance: PANTOPRAZOLE
     Indication: GASTROOESOPHAGEAL REFLUX DISEASE
     Dosage: 40 MG, AS NEEDED
     Route: 048
     Dates: start: 20200125, end: 20200313
  5. NIVESTYM [Suspect]
     Active Substance: FILGRASTIM-AAFI
     Indication: CARCINOID TUMOUR
     Dosage: 300 MCG/ 0.5 ML, 2X/WEEK (ONE EVERY SATURDAY AND SUNDAY)
     Dates: start: 20200307
  6. ALLOPURINOL. [Concomitant]
     Active Substance: ALLOPURINOL
     Indication: BLOOD URIC ACID ABNORMAL
     Dosage: 200 MG, 1X/DAY
     Route: 048
     Dates: start: 20200125, end: 20200313
  7. LACTULOSE. [Concomitant]
     Active Substance: LACTULOSE
     Indication: CONSTIPATION
     Dosage: 15 ML, AS NEEDED (DAILY OR AS NEEDED)
     Route: 048
     Dates: start: 20200125, end: 20200313
  8. SUCRALFATE. [Concomitant]
     Active Substance: SUCRALFATE
     Indication: ULCER
     Dosage: 1 G, UNK (1 G BEFORE MEALS AND AT BEDTIME)
     Route: 048
     Dates: start: 20200125, end: 20200313
  9. CARBOPLATIN. [Concomitant]
     Active Substance: CARBOPLATIN
     Indication: NEUROENDOCRINE CARCINOMA
     Dosage: UNK
  10. NIVESTYM [Suspect]
     Active Substance: FILGRASTIM-AAFI
     Indication: WHITE BLOOD CELL COUNT DECREASED
  11. ACETAMINOPHEN. [Concomitant]
     Active Substance: ACETAMINOPHEN
     Indication: PAIN
     Dosage: 500 MG, AS NEEDED (500 MG EVERY 3 HOURS AS NEEDED)
     Route: 048
     Dates: start: 20200125
  12. NIVESTYM [Suspect]
     Active Substance: FILGRASTIM-AAFI
     Indication: AGRANULOCYTOSIS
     Dosage: 300 MCG/0.5ML (ADMINISTERED IN UPPER THIGH OR LOWER STOMACH, ALTERNATING SITES ON SAT AND SUN)
     Dates: start: 2020
  13. DOCUSATE SODIUM. [Concomitant]
     Active Substance: DOCUSATE SODIUM
     Indication: FAECES HARD
     Dosage: 100 MG, 1X/DAY
     Route: 048
     Dates: start: 20200125, end: 20200313
  14. CIPROFLOXACIN HCL [Concomitant]
     Active Substance: CIPROFLOXACIN HYDROCHLORIDE
     Indication: URINARY TRACT INFECTION
     Dosage: 250 MG, 2X/DAY
     Route: 048
     Dates: start: 20200311, end: 20200314

REACTIONS (11)
  - Abdominal distension [Unknown]
  - Sepsis [Unknown]
  - Gastrointestinal perforation [Unknown]
  - Weight decreased [Unknown]
  - Gait disturbance [Unknown]
  - Diarrhoea [Unknown]
  - Tumour rupture [Unknown]
  - Abdominal pain upper [Unknown]
  - Hepatic rupture [Unknown]
  - Gastric disorder [Unknown]
  - Vomiting [Unknown]

NARRATIVE: CASE EVENT DATE: 202003
